FAERS Safety Report 21382239 (Version 1)
Quarter: 2022Q3

REPORT INFORMATION
  Report Type: Spontaneous
  Country: US (occurrence: None)
  Receive Date: 20220926
  Receipt Date: 20220926
  Transmission Date: 20221026
  Serious: Yes (Disabling)
  Sender: FDA-Public Use
  Company Number: None

PATIENT
  Age: 59 Year
  Sex: Female
  Weight: 63 kg

DRUGS (1)
  1. OCREVUS [Suspect]
     Active Substance: OCRELIZUMAB
     Indication: Multiple sclerosis
     Dates: start: 20170714, end: 20170728

REACTIONS (5)
  - Balance disorder [None]
  - Gait inability [None]
  - Oedema peripheral [None]
  - Erythema [None]
  - Condition aggravated [None]

NARRATIVE: CASE EVENT DATE: 20170731
